FAERS Safety Report 19125467 (Version 2)
Quarter: 2021Q2

REPORT INFORMATION
  Report Type: Report from Study
  Country: KR (occurrence: KR)
  Receive Date: 20210412
  Receipt Date: 20210519
  Transmission Date: 20210717
  Serious: Yes (Hospitalization)
  Sender: FDA-Public Use
  Company Number: KR-TAKEDA-2021TUS022210

PATIENT
  Age: 79 Year
  Sex: Male

DRUGS (5)
  1. PREGABA [Concomitant]
     Active Substance: PREGABALIN
     Dosage: UNK UNK, BID
     Route: 048
     Dates: start: 20210324
  2. NUCYNTA [Concomitant]
     Active Substance: TAPENTADOL HYDROCHLORIDE
     Dosage: UNK UNK, BID
     Route: 048
     Dates: start: 20210324
  3. BRIGATINIB [Suspect]
     Active Substance: BRIGATINIB
     Indication: NON-SMALL CELL LUNG CANCER
     Dosage: 90 MILLIGRAM, QD
     Route: 048
     Dates: start: 20210324, end: 20210329
  4. BRIGATINIB [Suspect]
     Active Substance: BRIGATINIB
     Dosage: 30 MILLIGRAM, QD
     Route: 048
     Dates: start: 20210402
  5. ABSTRAL [Concomitant]
     Active Substance: FENTANYL CITRATE
     Dosage: UNK UNK, QID
     Route: 048
     Dates: start: 20210324

REACTIONS (1)
  - Lung disorder [Recovered/Resolved]

NARRATIVE: CASE EVENT DATE: 20210329
